FAERS Safety Report 21986187 (Version 1)
Quarter: 2023Q1

REPORT INFORMATION
  Report Type: Other
  Country: CA (occurrence: CA)
  Receive Date: 20230213
  Receipt Date: 20230213
  Transmission Date: 20230417
  Serious: Yes (Other)
  Sender: FDA-Public Use
  Company Number: CA-PFIZER INC-202300061848

PATIENT
  Sex: Female

DRUGS (8)
  1. AZITHROMYCIN [Suspect]
     Active Substance: AZITHROMYCIN
     Dosage: UNK
  2. CEFTRIAXONE SODIUM [Suspect]
     Active Substance: CEFTRIAXONE SODIUM
     Dosage: UNK
  3. DEXTROSE [Suspect]
     Active Substance: DEXTROSE
     Dosage: UNK
  4. MAGNESIUM SULFATE [Suspect]
     Active Substance: MAGNESIUM SULFATE
     Dosage: UNK
  5. AMPICILLIN [Suspect]
     Active Substance: AMPICILLIN
     Dosage: UNK
  6. ATOSIBAN [Suspect]
     Active Substance: ATOSIBAN
     Dosage: UNK
  7. BETAMETHASONE [Suspect]
     Active Substance: BETAMETHASONE
  8. GENTAMICIN [Suspect]
     Active Substance: GENTAMICIN

REACTIONS (2)
  - Maternal exposure during pregnancy [Unknown]
  - Premature delivery [Unknown]
